FAERS Safety Report 7412007-0 (Version None)
Quarter: 2011Q2

REPORT INFORMATION
  Report Type: 
  Country: None (occurrence: None)
  Receive Date: 20110404
  Receipt Date: 20110322
  Transmission Date: 20111010
  Serious: Yes (Hospitalization)
  Sender: FDA-Public Use
  Company Number: 1000019702

PATIENT
  Age: 47 Year
  Sex: Male

DRUGS (5)
  1. SERESTA (OXAZEPAM) (TABLET) (OXAZEPAM) [Concomitant]
  2. NICOBION (NICOTINAMIDE) (TABLETS) (NICOTINAMIDE) [Concomitant]
  3. TRAMADOL HYDROCHLORIDE [Suspect]
     Dosage: 100 MG (50 MG, 2 IN 1 D), ORAL
     Route: 048
     Dates: start: 20110307, end: 20110309
  4. IMOVANE (ZOPICLONE) (TABLETS) (ZOPICLONE) [Concomitant]
  5. ESCITALOPRAM OXALATE [Suspect]
     Dosage: 10 MG (10 MG, 1 IN 1 D), ORAL
     Route: 048
     Dates: start: 20110308, end: 20110310

REACTIONS (1)
  - CYTOLYTIC HEPATITIS [None]
